FAERS Safety Report 12671883 (Version 1)
Quarter: 2016Q3

REPORT INFORMATION
  Report Type: Spontaneous
  Country: US (occurrence: None)
  Receive Date: 20160819
  Receipt Date: 20160819
  Transmission Date: 20161109
  Serious: Yes (Hospitalization, Other)
  Sender: FDA-Public Use
  Company Number: None

PATIENT
  Age: 34 Year
  Sex: Male

DRUGS (5)
  1. BUMETANIDE. [Concomitant]
     Active Substance: BUMETANIDE
  2. CEFAZOLIN [Concomitant]
     Active Substance: CEFAZOLIN
  3. LOVENOX [Concomitant]
     Active Substance: ENOXAPARIN SODIUM
  4. METFORMIN [Concomitant]
     Active Substance: METFORMIN HYDROCHLORIDE
  5. COLISTIN [Suspect]
     Active Substance: COLISTIN
     Route: 042
     Dates: start: 20150901, end: 20150904

REACTIONS (1)
  - Renal failure [None]

NARRATIVE: CASE EVENT DATE: 20150901
